FAERS Safety Report 6968518-5 (Version None)
Quarter: 2010Q3

REPORT INFORMATION
  Report Type: 
  Country: None (occurrence: None)
  Receive Date: 20100907
  Receipt Date: 20100901
  Transmission Date: 20110219
  Serious: Yes (Death, Other)
  Sender: FDA-Public Use
  Company Number: NL-SANOFI-AVENTIS-2010SA052296

PATIENT
  Sex: Male

DRUGS (3)
  1. OXALIPLATIN [Suspect]
  2. XELODA [Suspect]
  3. ANTIHYPERTENSIVES [Concomitant]

REACTIONS (2)
  - DIARRHOEA [None]
  - PNEUMONIA ASPIRATION [None]
